FAERS Safety Report 8992907 (Version 7)
Quarter: 2013Q1

REPORT INFORMATION
  Report Type: Spontaneous
  Country: US (occurrence: US)
  Receive Date: 20130102
  Receipt Date: 20130107
  Transmission Date: 20140127
  Serious: Yes (Hospitalization)
  Sender: FDA-Public Use
  Company Number: US-JNJFOC-20121210598

PATIENT
  Age: 94 Year
  Sex: Female
  Weight: 48 kg

DRUGS (1)
  1. XARELTO [Suspect]
     Indication: ATRIAL FIBRILLATION
     Dosage: WAS ON RIVAROXABAN FOR ABOUT 60 DAYS
     Route: 048
     Dates: start: 2012, end: 201212

REACTIONS (4)
  - Gastrointestinal haemorrhage [Unknown]
  - Hepatic enzyme increased [Unknown]
  - Renal failure acute [Unknown]
  - International normalised ratio increased [Unknown]
